FAERS Safety Report 9438633 (Version 1)
Quarter: 2013Q3

REPORT INFORMATION
  Report Type: Spontaneous
  Country: CA (occurrence: CA)
  Receive Date: 20130802
  Receipt Date: 20130802
  Transmission Date: 20140515
  Serious: Yes (Death, Other)
  Sender: FDA-Public Use
  Company Number: CA-GLAXOSMITHKLINE-B0912812A

PATIENT
  Sex: Male

DRUGS (2)
  1. WELLBUTRIN [Suspect]
     Indication: PRODUCT USED FOR UNKNOWN INDICATION
     Route: 042
  2. COCAINE [Suspect]
     Indication: PRODUCT USED FOR UNKNOWN INDICATION
     Route: 042

REACTIONS (8)
  - Spinal cord injury [Unknown]
  - Brain stem syndrome [Unknown]
  - Death [Fatal]
  - Drug abuse [Unknown]
  - Muscular weakness [Unknown]
  - Incorrect route of drug administration [Unknown]
  - Off label use [Unknown]
  - Nuclear magnetic resonance imaging abnormal [Unknown]
